FAERS Safety Report 10518710 (Version 3)
Quarter: 2015Q2

REPORT INFORMATION
  Report Type: Spontaneous
  Country: US (occurrence: US)
  Receive Date: 20141015
  Receipt Date: 20150508
  Transmission Date: 20150821
  Serious: No
  Sender: FDA-Public Use
  Company Number: US-LEO PHARMA-221224

PATIENT
  Age: 71 Year
  Sex: Female

DRUGS (4)
  1. DAIVOBET [Suspect]
     Active Substance: BETAMETHASONE DIPROPIONATE\CALCIPOTRIENE
     Indication: PSORIASIS
     Dates: start: 20120802, end: 20130414
  2. TIROSINT [Concomitant]
     Active Substance: LEVOTHYROXINE SODIUM
     Indication: PARATHYROIDECTOMY
     Route: 048
  3. DAIVOBET [Suspect]
     Active Substance: BETAMETHASONE DIPROPIONATE\CALCIPOTRIENE
     Indication: PSORIASIS
  4. TIROSINT [Concomitant]
     Active Substance: LEVOTHYROXINE SODIUM
     Route: 048

REACTIONS (10)
  - Blood calcium increased [Recovering/Resolving]
  - Confusional state [Recovering/Resolving]
  - Folliculitis [Recovering/Resolving]
  - Vitamin D decreased [Recovering/Resolving]
  - Hyperparathyroidism [Recovering/Resolving]
  - Back pain [Recovering/Resolving]
  - Folliculitis [Unknown]
  - Weight decreased [Recovering/Resolving]
  - Application site burn [Recovering/Resolving]
  - Bone density decreased [Unknown]

NARRATIVE: CASE EVENT DATE: 20130414
